FAERS Safety Report 8442888-3 (Version None)
Quarter: 2012Q2

REPORT INFORMATION
  Report Type: 
  Country: None (occurrence: None)
  Receive Date: 20120615
  Receipt Date: 20120531
  Transmission Date: 20120825
  Serious: Yes (Death, Other)
  Sender: FDA-Public Use
  Company Number: DE-CUBIST-2011S1000660

PATIENT
  Age: 73 Year
  Sex: Male
  Weight: 98 kg

DRUGS (6)
  1. CUBICIN [Suspect]
     Indication: ENDOCARDITIS
     Dates: start: 20110801, end: 20110822
  2. CUBICIN [Suspect]
     Dates: start: 20110801, end: 20110822
  3. GENTAMICIN [Concomitant]
     Indication: PRODUCT USED FOR UNKNOWN INDICATION
     Dosage: DOSE UNIT:U
  4. CUBICIN [Suspect]
     Dates: start: 20110801, end: 20110822
  5. CUBICIN [Suspect]
     Indication: URINARY TRACT INFECTION
     Dates: start: 20110801, end: 20110822
  6. CIPROFLOXACIN [Concomitant]
     Indication: PRODUCT USED FOR UNKNOWN INDICATION
     Dosage: DOSE UNIT:U

REACTIONS (4)
  - TREATMENT FAILURE [None]
  - ENDOCARDITIS [None]
  - MULTI-ORGAN FAILURE [None]
  - SEPSIS [None]
